FAERS Safety Report 5581771-8 (Version None)
Quarter: 2008Q1

REPORT INFORMATION
  Report Type: 
  Country: None (occurrence: None)
  Receive Date: 20080104
  Receipt Date: 20071205
  Transmission Date: 20080703
  Serious: Yes (Hospitalization, Other)
  Sender: FDA-Public Use
  Company Number: FR-PFIZER INC-2007103434

PATIENT
  Sex: Male

DRUGS (1)
  1. TAHOR [Suspect]

REACTIONS (1)
  - TOXIC SKIN ERUPTION [None]
